FAERS Safety Report 5356729-4 (Version None)
Quarter: 2007Q2

REPORT INFORMATION
  Report Type: 
  Country: None (occurrence: None)
  Receive Date: 20070530
  Receipt Date: 20061113
  Transmission Date: 20071010
  Serious: Yes (Other)
  Sender: FDA-Public Use
  Company Number: US200608005476

PATIENT
  Age: 17 Year
  Sex: Female
  Weight: 63.5 kg

DRUGS (1)
  1. ZYPREXA [Suspect]
     Dates: start: 20030101, end: 20030501

REACTIONS (2)
  - PANCREATITIS [None]
  - WEIGHT DECREASED [None]
